FAERS Safety Report 19310137 (Version 3)
Quarter: 2021Q2

REPORT INFORMATION
  Report Type: Report from Study
  Country: US (occurrence: US)
  Receive Date: 20210526
  Receipt Date: 20210621
  Transmission Date: 20210717
  Serious: No
  Sender: FDA-Public Use
  Company Number: US-ORGANON-O2105USA001160

PATIENT
  Age: 18 Year
  Sex: Female
  Weight: 70.75 kg

DRUGS (1)
  1. IMPLANON [Suspect]
     Active Substance: ETONOGESTREL
     Dosage: 1 DOSAGE FORM, ONCE
     Route: 059
     Dates: start: 20210513, end: 20210513

REACTIONS (4)
  - No adverse event [Unknown]
  - Complication of device insertion [Not Recovered/Not Resolved]
  - Device expulsion [Recovered/Resolved]
  - Product quality issue [Unknown]

NARRATIVE: CASE EVENT DATE: 20210513
